FAERS Safety Report 15357801 (Version 2)
Quarter: 2018Q4

REPORT INFORMATION
  Report Type: Spontaneous
  Country: US (occurrence: US)
  Receive Date: 20180906
  Receipt Date: 20181113
  Transmission Date: 20190204
  Serious: Yes (Other)
  Sender: FDA-Public Use
  Company Number: US-ASTRAZENECA-2018SF08627

PATIENT
  Age: 21053 Day
  Sex: Male
  Weight: 106.6 kg

DRUGS (13)
  1. FASENRA [Suspect]
     Active Substance: BENRALIZUMAB
     Indication: ASTHMA
     Dosage: 30 MG/ML EVERY 4 WEEK, THEN DECLINED WITH FASNERA EVERY 8 WEEK
     Route: 058
     Dates: start: 20180501
  2. PREDNISONE. [Concomitant]
     Active Substance: PREDNISONE
     Route: 048
     Dates: start: 20180626
  3. PREDNISONE. [Concomitant]
     Active Substance: PREDNISONE
     Route: 048
     Dates: start: 20180626
  4. PROAIR HFA [Concomitant]
     Active Substance: ALBUTEROL SULFATE
  5. ADVAIR HFA [Concomitant]
     Active Substance: FLUTICASONE PROPIONATE\SALMETEROL XINAFOATE
  6. FLONASE [Concomitant]
     Active Substance: FLUTICASONE PROPIONATE
  7. MELATONIN [Concomitant]
     Active Substance: MELATONIN
     Route: 048
     Dates: start: 20180501
  8. XOLAIR [Concomitant]
     Active Substance: OMALIZUMAB
     Indication: ASTHMA
     Dosage: 2012-2014
  9. FASENRA [Suspect]
     Active Substance: BENRALIZUMAB
     Indication: RHINITIS ALLERGIC
     Dosage: 30 MG/ML EVERY 4 WEEK, THEN DECLINED WITH FASNERA EVERY 8 WEEK
     Route: 058
     Dates: start: 20180501
  10. ZILEUTON. [Concomitant]
     Active Substance: ZILEUTON
  11. FLOVENT HFA [Concomitant]
     Active Substance: FLUTICASONE PROPIONATE
  12. ALBUTEROL. [Concomitant]
     Active Substance: ALBUTEROL
     Dosage: 1 AMPOULE NEBULIZED EVERY 4 HOURS
     Dates: start: 20180220
  13. ALLEGRA [Concomitant]
     Active Substance: FEXOFENADINE HYDROCHLORIDE

REACTIONS (2)
  - Asthma [Unknown]
  - Drug effect decreased [Not Recovered/Not Resolved]

NARRATIVE: CASE EVENT DATE: 20180501
